FAERS Safety Report 25078774 (Version 3)
Quarter: 2025Q3

REPORT INFORMATION
  Report Type: Spontaneous
  Country: US (occurrence: US)
  Receive Date: 20250314
  Receipt Date: 20250731
  Transmission Date: 20251020
  Serious: No
  Sender: CALLIDITAS THERAPEUTICS AB
  Company Number: US-Calliditas-2025CAL00624

PATIENT
  Age: 75 Year
  Sex: Female

DRUGS (17)
  1. TARPEYO [Suspect]
     Active Substance: BUDESONIDE
     Indication: IgA nephropathy
     Route: 048
     Dates: start: 20250112
  2. TARPEYO [Suspect]
     Active Substance: BUDESONIDE
     Indication: IgA nephropathy
     Route: 048
     Dates: start: 202503
  3. OXYCODONE [Concomitant]
     Active Substance: OXYCODONE
  4. BUPROPION [Concomitant]
     Active Substance: BUPROPION
  5. CHOLECALCIFEROL [Concomitant]
     Active Substance: CHOLECALCIFEROL
  6. DIAZEPAM [Concomitant]
     Active Substance: DIAZEPAM
  7. ESTRADIOL [Concomitant]
     Active Substance: ESTRADIOL
  8. FARXIGA [Concomitant]
     Active Substance: DAPAGLIFLOZIN PROPANEDIOL
  9. FUROSEMIDE [Concomitant]
     Active Substance: FUROSEMIDE
  10. LINZESS [Concomitant]
     Active Substance: LINACLOTIDE
  11. MAGNESIUM OXIDE [Concomitant]
     Active Substance: MAGNESIUM OXIDE
  12. OMEPRAZOLE [Concomitant]
     Active Substance: OMEPRAZOLE
  13. PROPRANOLOL [Concomitant]
     Active Substance: PROPRANOLOL HYDROCHLORIDE
  14. ROSUVASTATIN [Concomitant]
     Active Substance: ROSUVASTATIN
  15. SPARSENTAN [Concomitant]
     Active Substance: SPARSENTAN
  16. VALACYCLOVIR HYDROCHLORIDE [Concomitant]
     Active Substance: VALACYCLOVIR HYDROCHLORIDE
  17. FLONASE ALLERGY RELIEF [Concomitant]
     Active Substance: FLUTICASONE PROPIONATE

REACTIONS (5)
  - Blood pressure increased [Recovering/Resolving]
  - Swelling [Recovering/Resolving]
  - Prescribed underdose [Not Recovered/Not Resolved]
  - Migraine [Recovering/Resolving]
  - Contusion [Recovering/Resolving]

NARRATIVE: CASE EVENT DATE: 20250301
